FAERS Safety Report 12919575 (Version 2)
Quarter: 2016Q4

REPORT INFORMATION
  Report Type: Report from Study
  Country: US (occurrence: US)
  Receive Date: 20161108
  Receipt Date: 20161123
  Transmission Date: 20170207
  Serious: Yes (Hospitalization)
  Sender: FDA-Public Use
  Company Number: US-ROCHE-1822023

PATIENT
  Age: 61 Year
  Sex: Male
  Weight: 96.9 kg

DRUGS (35)
  1. FLUOCINONIDE. [Concomitant]
     Active Substance: FLUOCINONIDE
     Indication: PSORIASIS
     Route: 065
     Dates: start: 20121212
  2. MARINOL (UNITED STATES) [Concomitant]
     Indication: DECREASED APPETITE
     Route: 065
     Dates: start: 20160808
  3. NORMAL SALINE [Concomitant]
     Active Substance: SODIUM CHLORIDE
     Indication: DECREASED APPETITE
     Route: 065
     Dates: start: 20160808
  4. DEXAMETHASONE. [Concomitant]
     Active Substance: DEXAMETHASONE
     Indication: PREMEDICATION
     Route: 065
     Dates: start: 20160706, end: 20160706
  5. PLATELETS [Concomitant]
     Active Substance: HUMAN PLATELET, ALLOGENIC
     Indication: THROMBOCYTOPENIA
     Route: 065
     Dates: start: 20160713, end: 20160713
  6. RED BLOOD CELLS [Concomitant]
     Active Substance: HUMAN RED BLOOD CELL
     Indication: THROMBOCYTOPENIA
     Route: 065
     Dates: start: 20160827, end: 20160827
  7. CYCLOPHOSPHAMIDE. [Suspect]
     Active Substance: CYCLOPHOSPHAMIDE
     Indication: B-CELL LYMPHOMA
     Dosage: MOST RECENT DOSE PRIOR TO EVENT ONSET 1700 MG ON 17/AUG/2016 AT 12:42?MOST RECENT DOSE 1590 MG ON 19
     Route: 042
     Dates: start: 20160706
  8. DOXORUBICIN [Suspect]
     Active Substance: DOXORUBICIN
     Indication: B-CELL LYMPHOMA
     Dosage: MOST RECENT DOSE 110 MG ON 17/AUG/2016 AT 13:52?MOST RECENT DOSE 106 MG ON 19/SEP/2016 AT 13:50?MOST
     Route: 042
     Dates: start: 20160706
  9. NORMAL SALINE [Concomitant]
     Active Substance: SODIUM CHLORIDE
     Indication: ILEUS
  10. RITUXIMAB [Suspect]
     Active Substance: RITUXIMAB
     Indication: B-CELL LYMPHOMA
     Dosage: MOST RECENT DOSE PRIOR TO EVENT ONSET 795 MG ON 17/AUG/2016?MOST RECENT DOSE PRIOR TO EVENT SECOND O
     Route: 042
     Dates: start: 20160706
  11. PREDNISONE. [Suspect]
     Active Substance: PREDNISONE
     Indication: B-CELL LYMPHOMA
     Dosage: MOST RECENT DOSE PRIOR TO EVENT ONSET 11 MG ON 21/AUG/2016?MOST RECENT DOSE PRIOR TO THE ONSET OF NE
     Route: 048
     Dates: start: 20160706
  12. IMODIUM [Concomitant]
     Active Substance: LOPERAMIDE HYDROCHLORIDE
     Indication: DIARRHOEA
     Route: 065
     Dates: start: 20160718
  13. NEXIUM [Concomitant]
     Active Substance: ESOMEPRAZOLE MAGNESIUM
     Indication: GASTROOESOPHAGEAL REFLUX DISEASE
     Route: 065
     Dates: start: 20160806
  14. FAMOTIDINE. [Concomitant]
     Active Substance: FAMOTIDINE
     Indication: GASTROOESOPHAGEAL REFLUX DISEASE
     Route: 065
     Dates: start: 20160825, end: 20160901
  15. FAMOTIDINE. [Concomitant]
     Active Substance: FAMOTIDINE
     Indication: PREMEDICATION
     Route: 065
     Dates: start: 20160706, end: 20160706
  16. BENADRYL [Concomitant]
     Active Substance: DIPHENHYDRAMINE HYDROCHLORIDE
     Indication: PRURITUS
     Route: 065
     Dates: start: 20160825
  17. SODIUM CHLORIDE. [Concomitant]
     Active Substance: SODIUM CHLORIDE
     Indication: PROPHYLAXIS
     Route: 065
     Dates: start: 20160708, end: 20160711
  18. AMOXICILLIN. [Concomitant]
     Active Substance: AMOXICILLIN
     Indication: DEVICE RELATED INFECTION
     Route: 065
     Dates: start: 20160713, end: 20160719
  19. LORAZEPAM. [Concomitant]
     Active Substance: LORAZEPAM
     Indication: ANXIETY
     Route: 065
     Dates: start: 20160623
  20. ACETAMINOPHEN. [Concomitant]
     Active Substance: ACETAMINOPHEN
     Indication: PREMEDICATION
     Route: 065
     Dates: start: 20160706, end: 20160706
  21. NEULASTA [Concomitant]
     Active Substance: PEGFILGRASTIM
     Indication: PROPHYLAXIS
     Route: 065
     Dates: start: 20160707, end: 20160707
  22. PREDNISONE. [Concomitant]
     Active Substance: PREDNISONE
     Indication: PERIPHERAL SWELLING
     Route: 065
     Dates: start: 20160630, end: 20160703
  23. LEVOFLOXACIN. [Concomitant]
     Active Substance: LEVOFLOXACIN
     Indication: CYST
     Route: 065
     Dates: start: 20160727, end: 20160805
  24. METRONIDAZOLE. [Concomitant]
     Active Substance: METRONIDAZOLE
     Indication: CYST
     Route: 065
     Dates: start: 20160727, end: 20160805
  25. PLATELETS [Concomitant]
     Active Substance: HUMAN PLATELET, ALLOGENIC
     Route: 065
     Dates: start: 20160825, end: 20160825
  26. VENETOCLAX [Suspect]
     Active Substance: VENETOCLAX
     Indication: B-CELL LYMPHOMA
     Dosage: MOST RECENT DOSE PRIOR TO EVENT ONSET 800 MG ON 25/AUG/2016?MOST RECENT DOSE PRIOR TO EVENT ONSET 60
     Route: 048
     Dates: start: 20160709
  27. VINCRISTINE [Suspect]
     Active Substance: VINCRISTINE
     Indication: B-CELL LYMPHOMA
     Dosage: LAST DOSE PRIOR TO EVENT ONSET 2 MG ON 17/AUG/2016 AT 14:12?MOST RECENT DOSE 2 MG ON 19/SEP/2016 AT
     Route: 042
     Dates: start: 20160706
  28. ALLOPURINOL. [Concomitant]
     Active Substance: ALLOPURINOL
     Indication: PROPHYLAXIS
     Route: 065
     Dates: start: 20160622
  29. MAGNESIUM SULFATE. [Concomitant]
     Active Substance: MAGNESIUM SULFATE
     Indication: HYPOMAGNESAEMIA
     Route: 065
     Dates: start: 20160825, end: 20160901
  30. CLARITIN (UNITED STATES) [Concomitant]
     Indication: PROPHYLAXIS
     Route: 065
     Dates: start: 20160825
  31. PLATELETS [Concomitant]
     Active Substance: HUMAN PLATELET, ALLOGENIC
     Route: 065
     Dates: start: 20160826, end: 20160826
  32. POTASSIUM CHLORIDE. [Concomitant]
     Active Substance: POTASSIUM CHLORIDE
     Indication: HYPOKALAEMIA
     Route: 065
     Dates: start: 20160826, end: 20160901
  33. ONDANSETRON [Concomitant]
     Active Substance: ONDANSETRON
     Indication: PREMEDICATION
     Route: 065
     Dates: start: 20160706, end: 20160706
  34. EMEND [Concomitant]
     Active Substance: APREPITANT
     Indication: PREMEDICATION
     Route: 065
     Dates: start: 20160706, end: 20160708
  35. SODIUM BICARBONATE. [Concomitant]
     Active Substance: SODIUM BICARBONATE
     Indication: PROPHYLAXIS
     Route: 065
     Dates: start: 20160708, end: 20160711

REACTIONS (2)
  - Febrile neutropenia [Not Recovered/Not Resolved]
  - Febrile neutropenia [Recovered/Resolved]

NARRATIVE: CASE EVENT DATE: 20160825
